FAERS Safety Report 8598777-7 (Version None)
Quarter: 2012Q3

REPORT INFORMATION
  Report Type: 
  Country: None (occurrence: None)
  Receive Date: 20120816
  Receipt Date: 20120813
  Transmission Date: 20120928
  Serious: Yes (Other)
  Sender: FDA-Public Use
  Company Number: US-ASTRAZENECA-2012SE56985

PATIENT
  Age: 57 Year
  Sex: Female
  Weight: 61.2 kg

DRUGS (4)
  1. VOLTAREN [Concomitant]
     Indication: PAIN
  2. TYLENOL [Concomitant]
     Indication: PAIN
  3. PROPOFOL [Suspect]
     Indication: ARTHROSCOPY
     Route: 042
  4. VITAMIN TAB [Concomitant]

REACTIONS (1)
  - NEPHROLITHIASIS [None]
